FAERS Safety Report 16883242 (Version 1)
Quarter: 2019Q4

REPORT INFORMATION
  Report Type: Spontaneous
  Country: US (occurrence: US)
  Receive Date: 20191004
  Receipt Date: 20191004
  Transmission Date: 20200122
  Serious: No
  Sender: FDA-Public Use
  Company Number: US-SA-2019SA271635

PATIENT
  Age: 75 Year
  Sex: Female

DRUGS (1)
  1. PRALUENT [Suspect]
     Active Substance: ALIROCUMAB
     Dosage: 75 MG, QOW

REACTIONS (6)
  - Contusion [Unknown]
  - Muscle spasms [Unknown]
  - Hypokinesia [Unknown]
  - Diarrhoea [Unknown]
  - Pain in extremity [Unknown]
  - Spider vein [Unknown]
